FAERS Safety Report 24857229 (Version 2)
Quarter: 2025Q1

REPORT INFORMATION
  Report Type: Report from Study
  Country: CA (occurrence: CA)
  Receive Date: 20250117
  Receipt Date: 20250121
  Transmission Date: 20250409
  Serious: Yes (Other)
  Sender: JOHNSON AND JOHNSON
  Company Number: CA-JNJFOC-20241167609

PATIENT
  Age: 67 Year
  Sex: Female
  Weight: 52 kg

DRUGS (10)
  1. SIMPONI [Suspect]
     Active Substance: GOLIMUMAB
     Indication: Rheumatoid arthritis
     Dosage: THERAPY START DATE ALSO REPORTED AS 16-MAY-2014
     Route: 041
     Dates: start: 20140506
  2. METHOTREXATE [Concomitant]
     Active Substance: METHOTREXATE
     Route: 048
     Dates: start: 20241218
  3. METHOTREXATE [Concomitant]
     Active Substance: METHOTREXATE
     Route: 048
     Dates: start: 20231206
  4. cranberry fruit extract/d-mannose [Concomitant]
     Dosage: STRENGTH: 450MG-50MG
     Route: 048
  5. PROLIA [Concomitant]
     Active Substance: DENOSUMAB
  6. LORATADINE [Concomitant]
     Active Substance: LORATADINE
     Route: 048
  7. MYRBETRIQ [Concomitant]
     Active Substance: MIRABEGRON
     Route: 048
  8. PREMARIN [Concomitant]
     Active Substance: ESTROGENS, CONJUGATED
  9. ROSUVASTATIN CALCIUM [Concomitant]
     Active Substance: ROSUVASTATIN CALCIUM
     Route: 048
  10. TYLENOL ARTHRITIs er [Concomitant]

REACTIONS (3)
  - Pulmonary embolism [Unknown]
  - Hypertonic bladder [Unknown]
  - Cystitis [Recovered/Resolved]

NARRATIVE: CASE EVENT DATE: 20250101
